FAERS Safety Report 9946552 (Version 2)
Quarter: 2014Q2

REPORT INFORMATION
  Report Type: Report from Study
  Country: US (occurrence: US)
  Receive Date: 20140303
  Receipt Date: 20140416
  Transmission Date: 20141212
  Serious: Yes (Hospitalization)
  Sender: FDA-Public Use
  Company Number: PHEH2014US004187

PATIENT
  Age: 18 Year
  Sex: Male

DRUGS (3)
  1. TOBI [Suspect]
     Indication: BRONCHIAL DISORDER
     Dosage: 300 MG/5 ML, BID
     Route: 055
     Dates: start: 201301
  2. TOBI [Suspect]
     Indication: TRACHEAL DISORDER
  3. TOBI [Suspect]
     Indication: OFF LABEL USE

REACTIONS (1)
  - Influenza [Unknown]
